FAERS Safety Report 5127902-5 (Version None)
Quarter: 2006Q4

REPORT INFORMATION
  Report Type: 
  Country: None (occurrence: None)
  Receive Date: 20061016
  Receipt Date: 20061006
  Transmission Date: 20070319
  Serious: Yes (Other)
  Sender: FDA-Public Use
  Company Number: ES-ABBOTT-06P-144-0346023-00

PATIENT
  Age: 81 Year
  Sex: Female
  Weight: 60 kg

DRUGS (1)
  1. AKINETON [Suspect]
     Indication: PARKINSON'S DISEASE
     Route: 048
     Dates: start: 20060711, end: 20060715

REACTIONS (1)
  - HALLUCINATION [None]
